FAERS Safety Report 7704670-1 (Version None)
Quarter: 2011Q3

REPORT INFORMATION
  Report Type: 
  Country: None (occurrence: None)
  Receive Date: 20110823
  Receipt Date: 20110816
  Transmission Date: 20111222
  Serious: Yes (Other)
  Sender: FDA-Public Use
  Company Number: GB-B.I. PHARMACEUTICALS,INC./RIDGEFIELD-2011-UK-00877UK

PATIENT
  Age: 75 Year
  Sex: Female
  Weight: 64 kg

DRUGS (21)
  1. ASPIRIN [Concomitant]
     Dosage: 75MG 1/1 DAYS
  2. ADCAL-D3 [Concomitant]
     Dosage: 1DF 2/1 DAYS
  3. CANDESARTAN CILEXETIL [Concomitant]
     Dosage: 4MG 1/1 DAYS
  4. CLONAZEPAM [Concomitant]
     Dosage: 500UG 1/1 DAYS
  5. SERETIDE [Concomitant]
     Dosage: 2DF 2/1 DAYS
     Route: 055
  6. SIMVADOR [Concomitant]
     Dosage: 20MG 1/1 DAYS
  7. SITAGLIPTIN [Concomitant]
     Dosage: 100MG 1/1 DAYS
  8. WARFARIN SODIUM [Concomitant]
     Dosage: 3MG
  9. NITROLINGUAL [Concomitant]
     Dosage: 400UG AS NECESSARY
  10. TRAMADOL HCL [Concomitant]
     Dosage: 50MG 1/4 HOURS
  11. TARDISC XL [Concomitant]
     Dosage: 1 ANZ
  12. METFORMIN HCL [Concomitant]
     Dosage: 500MG 2/1 DAYS
  13. MONTELUKAST SODIUM [Concomitant]
     Dosage: 10MG 1/1 DAYS
  14. PANTOPRAZOLE [Concomitant]
     Dosage: 40MG 1/1 DAYS
  15. PREDNISOLONE [Concomitant]
     Dosage: 5MG
  16. VENTOLIN HFA [Concomitant]
     Dosage: 2DF AS NECESSARY
     Route: 055
  17. DABIGATRAN [Suspect]
     Indication: THROMBOSIS PROPHYLAXIS
     Dosage: 150MG
     Route: 048
     Dates: start: 20110628
  18. LORATADINE [Concomitant]
     Dosage: 10MG 1/1 DAYS
  19. WARFARIN SODIUM [Concomitant]
     Dosage: 1MG
  20. ADIZEM-SR [Concomitant]
     Dosage: 120MG 2/1 DAYS
  21. ALENDRONIC ACID [Concomitant]
     Dosage: 70MG 1/1 WEEKS

REACTIONS (2)
  - DEEP VEIN THROMBOSIS [None]
  - DRUG INEFFECTIVE [None]
